FAERS Safety Report 4342381-3 (Version None)
Quarter: 2004Q2

REPORT INFORMATION
  Report Type: 
  Country: None (occurrence: None)
  Receive Date: 20040421
  Receipt Date: 20040413
  Transmission Date: 20050107
  Serious: Yes (Other)
  Sender: FDA-Public Use
  Company Number: PHNR2004AU00883

PATIENT
  Sex: Female

DRUGS (1)
  1. PARLODEL [Suspect]
     Dosage: 5 MG, ONCE/SINGLE
     Route: 048
     Dates: start: 20021105, end: 20021105

REACTIONS (5)
  - ANAPHYLACTOID REACTION [None]
  - CYANOSIS [None]
  - EYE ROLLING [None]
  - OCULOGYRATION [None]
  - RESPIRATORY RATE INCREASED [None]
